FAERS Safety Report 4497504-2 (Version None)
Quarter: 2004Q4

REPORT INFORMATION
  Report Type: 
  Country: None (occurrence: None)
  Receive Date: 20041110
  Receipt Date: 20041028
  Transmission Date: 20050328
  Serious: Yes (Hospitalization)
  Sender: FDA-Public Use
  Company Number: FR-ROCHE-384567

PATIENT
  Age: 52 Year
  Sex: Female

DRUGS (4)
  1. MYCOPHENOLATE MOFETIL [Suspect]
     Route: 065
  2. AZATHIOPRINE [Concomitant]
  3. TACROLIMUS [Concomitant]
  4. CORTICOSTEROID [Concomitant]

REACTIONS (7)
  - ASTHENIA [None]
  - HAEMOGLOBIN DECREASED [None]
  - HYPOCHOLESTEROLAEMIA [None]
  - INTESTINAL VILLI ATROPHY [None]
  - RED BLOOD CELL MACROCYTES PRESENT [None]
  - VITAMIN B12 DECREASED [None]
  - WEIGHT DECREASED [None]
